FAERS Safety Report 7926875-7 (Version None)
Quarter: 2011Q4

REPORT INFORMATION
  Report Type: 
  Country: None (occurrence: None)
  Receive Date: 20111118
  Receipt Date: 20111115
  Transmission Date: 20120403
  Serious: Yes (Death, Other)
  Sender: FDA-Public Use
  Company Number: US-PFIZER INC-2011218872

PATIENT
  Sex: Male

DRUGS (6)
  1. PROGRAF [Concomitant]
     Dosage: 0.5 MG, 2X/DAY
     Route: 048
  2. PLAVIX [Concomitant]
     Dosage: 75 MG, DAILY
     Route: 048
  3. NEXIUM [Concomitant]
     Dosage: 20 MG, DAILY
     Route: 048
  4. RAPAMUNE [Suspect]
     Indication: HEART TRANSPLANT
     Dosage: 1 MG, DAILY
     Route: 048
     Dates: start: 20110908
  5. PRAVASTATIN [Concomitant]
     Dosage: 40 MG, DAILY
     Route: 048
  6. MYCOPHENOLATE MOFETIL (CELLCEPT) [Concomitant]
     Dosage: 1500 MG, 2X/DAY
     Route: 048

REACTIONS (1)
  - COMPLICATIONS OF TRANSPLANTED HEART [None]
